FAERS Safety Report 4953649-1 (Version None)
Quarter: 2006Q1

REPORT INFORMATION
  Report Type: 
  Country: None (occurrence: None)
  Receive Date: 20060321
  Receipt Date: 20060315
  Transmission Date: 20060701
  Serious: Yes (Death, Hospitalization)
  Sender: FDA-Public Use
  Company Number: HQWYE356016MAR06

PATIENT
  Age: 43 Year
  Sex: Male
  Weight: 99.2 kg

DRUGS (3)
  1. MYLOTARG [Suspect]
     Indication: ACUTE MYELOID LEUKAEMIA
     Dosage: 13.08 MG 1X PER 1 DAY, INTRAVENOUS
     Route: 042
     Dates: start: 20050630, end: 20050630
  2. CYTARABINE [Suspect]
     Indication: ACUTE MYELOID LEUKAEMIA
     Dosage: CONTINUOUS INTRAVENOUS INFUSION X  7 DAYS, CUMULATIVE DOSE OF 1526 MG, INTRAVENOUS
     Route: 042
     Dates: start: 20050630, end: 20050707
  3. DAUNOMYCIN (DAUNORUBICIN,) [Suspect]
     Indication: ACUTE MYELOID LEUKAEMIA
     Dosage: CUMULATIVE DOSE OF 294 MG, INTRAVENOUS
     Route: 042
     Dates: start: 20050630, end: 20050702

REACTIONS (9)
  - ACUTE RESPIRATORY DISTRESS SYNDROME [None]
  - ELECTROCARDIOGRAM ST SEGMENT ELEVATION [None]
  - HAEMORRHAGE [None]
  - INFECTION [None]
  - NEUTROPENIA [None]
  - PERICARDIAL EFFUSION [None]
  - PERICARDITIS [None]
  - RESPIRATORY FAILURE [None]
  - THROMBOCYTOPENIA [None]
